FAERS Safety Report 9282474 (Version 2)
Quarter: 2013Q4

REPORT INFORMATION
  Report Type: Spontaneous
  Country: IT (occurrence: IT)
  Receive Date: 20130510
  Receipt Date: 20131030
  Transmission Date: 20140711
  Serious: Yes (Other)
  Sender: FDA-Public Use
  Company Number: IT-JNJFOC-20130501521

PATIENT
  Age: 40 Year
  Sex: Female

DRUGS (3)
  1. SIMPONI [Suspect]
     Indication: PSORIATIC ARTHROPATHY
     Route: 058
     Dates: start: 20111001, end: 201205
  2. SIMPONI [Suspect]
     Indication: PSORIATIC ARTHROPATHY
     Route: 058
     Dates: start: 2012, end: 20121117
  3. SALAZOPYRIN EN-TABS [Suspect]
     Indication: PSORIATIC ARTHROPATHY
     Dosage: 500MG TABLET
     Route: 048
     Dates: start: 20080101, end: 20121117

REACTIONS (2)
  - Cystitis [Recovering/Resolving]
  - Psoriasis [Recovering/Resolving]
